FAERS Safety Report 4912758-3 (Version None)
Quarter: 2006Q1

REPORT INFORMATION
  Report Type: 
  Country: None (occurrence: None)
  Receive Date: 20060213
  Receipt Date: 20060131
  Transmission Date: 20060701
  Serious: Yes (Other)
  Sender: FDA-Public Use
  Company Number: 2005S1000124

PATIENT
  Sex: Female

DRUGS (1)
  1. ACITRETIN                            (ACITRETIN) [Suspect]
     Dosage: VAG
     Route: 067

REACTIONS (3)
  - CAESAREAN SECTION [None]
  - PREGNANCY [None]
  - TRANSMISSION OF DRUG VIA SEMEN [None]
